FAERS Safety Report 19362378 (Version 1)
Quarter: 2021Q2

REPORT INFORMATION
  Report Type: Spontaneous
  Country: CN (occurrence: CN)
  Receive Date: 20210601
  Receipt Date: 20210601
  Transmission Date: 20210717
  Serious: Yes (Other)
  Sender: FDA-Public Use
  Company Number: CN-009507513-2105CHN007145

PATIENT
  Age: 68 Year
  Sex: Male
  Weight: 69 kg

DRUGS (7)
  1. MOXIFLOXACIN HYDROCHLORIDE AND SODIUM CHLORIDE [Concomitant]
     Active Substance: MOXIFLOXACIN HYDROCHLORIDE
     Indication: PNEUMONIA
     Dosage: 0.4 G, ONCE DAILY (QD)
     Route: 041
     Dates: start: 20210502, end: 20210511
  2. TIENAM [Suspect]
     Active Substance: CILASTATIN SODIUM\IMIPENEM
     Indication: PNEUMONIA
     Dosage: FOUR TIMES DAILY (ALSO REPORTED AS Q6H)
     Route: 041
     Dates: start: 20210501, end: 20210503
  3. TIENAM [Suspect]
     Active Substance: CILASTATIN SODIUM\IMIPENEM
     Indication: INFECTION
  4. SODIUM CHLORIDE. [Concomitant]
     Active Substance: SODIUM CHLORIDE
     Indication: MEDICATION DILUTION
     Dosage: 100 ML, FOUR TIMES DAILY (ALSO REPORTED AS Q6H)
     Route: 041
     Dates: start: 20210501, end: 20210503
  5. SODIUM CHLORIDE. [Concomitant]
     Active Substance: SODIUM CHLORIDE
     Dosage: 100 ML, TWICE DAILY (BID)
     Route: 041
     Dates: start: 20210501, end: 20210514
  6. AMBROXOL HYDROCHLORIDE [Concomitant]
     Active Substance: AMBROXOL HYDROCHLORIDE
     Indication: INCREASED VISCOSITY OF BRONCHIAL SECRETION
     Dosage: 30 MG, TWICE DAILY (BID)
     Route: 041
     Dates: start: 20210501, end: 20210514
  7. MOXIFLOXACIN HYDROCHLORIDE AND SODIUM CHLORIDE [Concomitant]
     Active Substance: MOXIFLOXACIN HYDROCHLORIDE
     Indication: INFECTION

REACTIONS (5)
  - Irritability [Recovering/Resolving]
  - Delirium [Recovering/Resolving]
  - Mental disorder [Recovering/Resolving]
  - Hallucination [Recovering/Resolving]
  - Disorganised speech [Recovering/Resolving]

NARRATIVE: CASE EVENT DATE: 20210503
